FAERS Safety Report 8272607 (Version 5)
Quarter: 2016Q3

REPORT INFORMATION
  Report Type: Spontaneous
  Country: US (occurrence: US)
  Receive Date: 20111125
  Receipt Date: 20160819
  Transmission Date: 20161109
  Serious: Yes (Hospitalization, Other)
  Sender: FDA-Public Use
  Company Number: CIP11003099

PATIENT
  Age: 75 Year
  Sex: Female

DRUGS (10)
  1. VOLTAREN [Concomitant]
     Active Substance: DICLOFENAC SODIUM
  2. CIMETIDINE [Concomitant]
     Active Substance: CIMETIDINE
  3. ACTONEL [Suspect]
     Active Substance: RISEDRONATE SODIUM
     Indication: OSTEOPOROSIS POSTMENOPAUSAL
     Route: 048
     Dates: start: 20021030
  4. CALCIUM CHLORIDE. [Concomitant]
     Active Substance: CALCIUM CHLORIDE
  5. DIDRONEL [Suspect]
     Active Substance: ETIDRONATE DISODIUM
     Route: 048
     Dates: start: 19931221, end: 19951229
  6. CYTOTEC [Concomitant]
     Active Substance: MISOPROSTOL
  7. VITAMIN D [Concomitant]
     Active Substance: CHOLECALCIFEROL
  8. BONIVA [Suspect]
     Active Substance: IBANDRONATE SODIUM
     Route: 048
     Dates: start: 20051229
  9. FOSAMAX [Suspect]
     Active Substance: ALENDRONATE SODIUM
     Route: 048
     Dates: start: 20010525
  10. RANITIDINE. [Concomitant]
     Active Substance: RANITIDINE

REACTIONS (18)
  - Muscular weakness [Unknown]
  - Scar [Unknown]
  - Fracture displacement [Recovered/Resolved]
  - Fracture displacement [Unknown]
  - Low turnover osteopathy [Unknown]
  - Anxiety [Unknown]
  - Pain in extremity [Recovered/Resolved]
  - Depression [Unknown]
  - Femur fracture [Recovered/Resolved]
  - Oedema peripheral [Unknown]
  - Bone pain [Unknown]
  - Stress fracture [Unknown]
  - Gait disturbance [Unknown]
  - Fracture delayed union [Unknown]
  - Femur fracture [Unknown]
  - Abdominal discomfort [Recovered/Resolved]
  - Haematoma [Unknown]
  - Fall [Recovered/Resolved]

NARRATIVE: CASE EVENT DATE: 20080505
